FAERS Safety Report 7745194-5 (Version None)
Quarter: 2011Q3

REPORT INFORMATION
  Report Type: 
  Country: None (occurrence: None)
  Receive Date: 20110907
  Receipt Date: 20110830
  Transmission Date: 20111222
  Serious: Yes (Other)
  Sender: FDA-Public Use
  Company Number: ACO_26431_2011

PATIENT

DRUGS (2)
  1. AMPYRA [Suspect]
     Indication: GAIT DISTURBANCE
  2. SELECTIVE SEROTONIN REUPTAKE INHIBITORS () [Suspect]

REACTIONS (1)
  - CONVULSION [None]
